FAERS Safety Report 5263851-X (Version None)
Quarter: 2007Q1

REPORT INFORMATION
  Report Type: 
  Country: None (occurrence: None)
  Receive Date: 20061213
  Receipt Date: 20031021
  Transmission Date: 20070707
  Serious: Yes (Other)
  Sender: FDA-Public Use
  Company Number: 2003UW10593

PATIENT
  Age: 79 Year
  Sex: Female
  Weight: 62.5964 kg

DRUGS (4)
  1. IRESSA [Suspect]
     Indication: LUNG NEOPLASM MALIGNANT
     Dosage: 250 MG DAILY PO
     Route: 048
     Dates: start: 20021018
  2. IRESSA [Suspect]
     Indication: LUNG NEOPLASM MALIGNANT
     Dates: start: 20030303
  3. IRESSA [Suspect]
     Indication: LUNG NEOPLASM MALIGNANT
     Dates: start: 20031002
  4. ZOMETA [Concomitant]

REACTIONS (5)
  - DISEASE PROGRESSION [None]
  - DRY SKIN [None]
  - NAIL DYSTROPHY [None]
  - NAIL INFECTION [None]
  - RASH PRURITIC [None]
